FAERS Safety Report 4554477-1 (Version None)
Quarter: 2005Q1

REPORT INFORMATION
  Report Type: 
  Country: None (occurrence: None)
  Receive Date: 20050114
  Receipt Date: 20031007
  Transmission Date: 20050727
  Serious: Yes (Death)
  Sender: FDA-Public Use
  Company Number: GXKR2003FR00561

PATIENT
  Age: 69 Year
  Sex: Female

DRUGS (6)
  1. METFORMIN HCL [Suspect]
     Indication: DIABETES MELLITUS
     Dosage: 1000 MG, TID, ORAL
     Route: 048
  2. GLYBURIDE [Concomitant]
  3. RAMIPRIL [Concomitant]
  4. DILTIAZEM HYDROCHLORIDE [Concomitant]
  5. HYPERICUM (RILMENIDINE) [Concomitant]
  6. LIBANTHYL (CLOFIBRATE) [Concomitant]

REACTIONS (10)
  - CARDIAC ARREST [None]
  - DIARRHOEA [None]
  - GASTROENTERITIS [None]
  - HAEMODYNAMIC INSTABILITY [None]
  - HYPERHIDROSIS [None]
  - HYPERKALAEMIA [None]
  - HYPOTENSION [None]
  - LACTIC ACIDOSIS [None]
  - PERIPHERAL COLDNESS [None]
  - VOMITING [None]
